FAERS Safety Report 8899625 (Version 1)
Quarter: 2012Q4

REPORT INFORMATION
  Report Type: Report from Study
  Country: CA (occurrence: CA)
  Receive Date: 20121109
  Receipt Date: 20121109
  Transmission Date: 20130627
  Serious: Yes (Other)
  Sender: FDA-Public Use
  Company Number: CA-EISAI INC-E7389-03218-CLI-CA

PATIENT
  Sex: Female

DRUGS (1)
  1. E7389 (BOLD) [Suspect]
     Indication: METASTATIC BREAST CANCER
     Dosage: UNKNOWN
     Route: 041

REACTIONS (1)
  - Hyperglycaemia [Unknown]
